FAERS Safety Report 8834861 (Version 1)
Quarter: 2012Q4

REPORT INFORMATION
  Report Type: 
  Country: US (occurrence: US)
  Receive Date: 20121011
  Receipt Date: 20121011
  Transmission Date: 20130627
  Serious: Yes (Hospitalization)
  Sender: FDA-Public Use
  Company Number: US-AMGEN-USASP2012064075

PATIENT
  Age: 15 Year
  Sex: Female

DRUGS (1)
  1. NEULASTA [Suspect]
     Indication: INFANTILE GENETIC AGRANULOCYTOSIS
     Dosage: 6 mg, q2wk
     Route: 058
     Dates: start: 20030627

REACTIONS (4)
  - Leukocytosis [Unknown]
  - Abscess jaw [Unknown]
  - Pyrexia [Recovered/Resolved]
  - Cellulitis [Recovered/Resolved]
